FAERS Safety Report 5923523-2 (Version None)
Quarter: 2008Q4

REPORT INFORMATION
  Report Type: 
  Country: None (occurrence: None)
  Receive Date: 20081020
  Receipt Date: 20081008
  Transmission Date: 20090506
  Serious: Yes (Hospitalization, Other)
  Sender: FDA-Public Use
  Company Number: DE-AMGEN-UK288299

PATIENT
  Sex: Female
  Weight: 83 kg

DRUGS (5)
  1. PANITUMUMAB [Suspect]
     Indication: COLORECTAL CANCER
     Route: 042
     Dates: start: 20070827
  2. DEXPANTHENOL [Suspect]
  3. LEUCOVORIN CALCIUM [Concomitant]
     Route: 042
  4. IRINOTECAN HYDROCHLORIDE [Concomitant]
     Route: 042
  5. FLUOROURACIL [Concomitant]
     Route: 042

REACTIONS (2)
  - DERMATOSIS [None]
  - HYPERSENSITIVITY [None]
